FAERS Safety Report 9764978 (Version 1)
Quarter: 2013Q4

REPORT INFORMATION
  Report Type: Spontaneous
  Country: US (occurrence: US)
  Receive Date: 20131217
  Receipt Date: 20131217
  Transmission Date: 20140711
  Serious: No
  Sender: FDA-Public Use
  Company Number: US-BIOGENIDEC-2013BI114404

PATIENT
  Sex: Female
  Weight: 68 kg

DRUGS (6)
  1. TECFIDERA [Suspect]
     Indication: PRODUCT USED FOR UNKNOWN INDICATION
     Route: 048
  2. LISINOPRIL [Concomitant]
  3. ASPIRIN [Concomitant]
  4. FISH OIL [Concomitant]
  5. VITAMIN B12 [Concomitant]
  6. VITAMIN D [Concomitant]

REACTIONS (4)
  - General symptom [Recovered/Resolved]
  - Dizziness [Recovered/Resolved]
  - Gait disturbance [Recovered/Resolved]
  - Balance disorder [Recovered/Resolved]
